FAERS Safety Report 24319699 (Version 1)
Quarter: 2024Q3

REPORT INFORMATION
  Report Type: Report from Study
  Country: CA (occurrence: CA)
  Receive Date: 20240914
  Receipt Date: 20240914
  Transmission Date: 20241017
  Serious: Yes (Hospitalization, Other)
  Sender: TAKEDA
  Company Number: CA-TAKEDA-2024TUS089179

PATIENT
  Sex: Female

DRUGS (6)
  1. VEDOLIZUMAB [Suspect]
     Active Substance: VEDOLIZUMAB
     Indication: Crohn^s disease
     Dosage: 300 MILLIGRAM
     Route: 042
     Dates: start: 20200305
  2. ASPIRIN [Concomitant]
     Active Substance: ASPIRIN
     Dosage: 80 MILLIGRAM
     Route: 048
  3. METHYLCOBALAMIN [Concomitant]
     Active Substance: METHYLCOBALAMIN
     Dosage: UNK
  4. LOXETINE [Concomitant]
     Dosage: UNK
  5. TRANDOLAPRIL [Concomitant]
     Active Substance: TRANDOLAPRIL
     Dosage: UNK
  6. TRAMADOL [Concomitant]
     Active Substance: TRAMADOL\TRAMADOL HYDROCHLORIDE
     Dosage: UNK

REACTIONS (1)
  - Loss of consciousness [Recovered/Resolved]
